FAERS Safety Report 15202693 (Version 2)
Quarter: 2018Q3

REPORT INFORMATION
  Report Type: Spontaneous
  Country: ES (occurrence: ES)
  Receive Date: 20180726
  Receipt Date: 20180804
  Transmission Date: 20181010
  Serious: Yes (Hospitalization, Other)
  Sender: FDA-Public Use
  Company Number: ES-AUROBINDO-AUR-APL-2018-037158

PATIENT
  Age: 84 Year
  Sex: Female

DRUGS (7)
  1. OMEPRAZOLE 20MG [Suspect]
     Active Substance: OMEPRAZOLE
     Indication: PRODUCT USED FOR UNKNOWN INDICATION
     Dosage: 1?0?0
     Route: 048
  2. SINTROM [Suspect]
     Active Substance: ACENOCOUMAROL
     Dosage: 1 DF, QD
     Route: 048
  3. PARACETAMOL [Concomitant]
     Active Substance: ACETAMINOPHEN
     Indication: PRODUCT USED FOR UNKNOWN INDICATION
     Dosage: UNK
     Route: 065
     Dates: start: 20170813
  4. PARACETAMOL [Concomitant]
     Active Substance: ACETAMINOPHEN
     Indication: PAIN
     Dosage: 1?1?1
     Route: 048
     Dates: start: 20171013
  5. DIGOXINA [Concomitant]
     Active Substance: DIGOXIN
     Indication: ATRIAL FIBRILLATION
     Dosage: 1?0?0
     Route: 048
  6. DIGOXINA [Concomitant]
     Active Substance: DIGOXIN
     Indication: PRODUCT USED FOR UNKNOWN INDICATION
  7. SINTROM [Suspect]
     Active Substance: ACENOCOUMAROL
     Indication: ATRIAL FIBRILLATION
     Dosage: 1?0?0
     Route: 048

REACTIONS (1)
  - Upper gastrointestinal haemorrhage [Recovered/Resolved]
